FAERS Safety Report 26110176 (Version 3)
Quarter: 2025Q4

REPORT INFORMATION
  Report Type: Report from Study
  Country: CA (occurrence: CA)
  Receive Date: 20251202
  Receipt Date: 20251225
  Transmission Date: 20260117
  Serious: Yes (Hospitalization, Other)
  Sender: ABBVIE
  Company Number: CA-ABBVIE-6569486

PATIENT
  Age: 47 Year
  Sex: Female

DRUGS (3)
  1. SKYRIZI [Suspect]
     Active Substance: RISANKIZUMAB-RZAA
     Indication: Crohn^s disease
     Dosage: WEEK 8
     Route: 042
     Dates: start: 20250918, end: 20250918
  2. SKYRIZI [Suspect]
     Active Substance: RISANKIZUMAB-RZAA
     Indication: Crohn^s disease
     Dosage: INTRAVENOUS INFUSION?LDD: 04 DEC 2025
     Route: 042
     Dates: start: 2025
  3. FLAGYL [Concomitant]
     Active Substance: METRONIDAZOLE\METRONIDAZOLE HYDROCHLORIDE
     Indication: Product used for unknown indication

REACTIONS (12)
  - Abscess [Unknown]
  - Ileectomy [Unknown]
  - Influenza like illness [Unknown]
  - Chills [Unknown]
  - Pyrexia [Unknown]
  - Hospitalisation [Recovered/Resolved]
  - Poor quality sleep [Unknown]
  - Defaecation urgency [Unknown]
  - Vision blurred [Unknown]
  - Headache [Unknown]
  - Cognitive disorder [Unknown]
  - Obstruction [Unknown]

NARRATIVE: CASE EVENT DATE: 20250101
